FAERS Safety Report 7986388-3 (Version None)
Quarter: 2011Q4

REPORT INFORMATION
  Report Type: 
  Country: None (occurrence: None)
  Receive Date: 20111216
  Receipt Date: 20110523
  Transmission Date: 20120403
  Serious: No
  Sender: FDA-Public Use
  Company Number: US-GLAXOSMITHKLINE-A0928563A

PATIENT
  Sex: Female

DRUGS (1)
  1. COREG CR [Suspect]
     Indication: HYPERTENSION
     Dosage: 80MG PER DAY
     Route: 048
     Dates: start: 20080901

REACTIONS (5)
  - ORAL DISCOMFORT [None]
  - BURNING SENSATION [None]
  - CHEILITIS [None]
  - ORAL LICHEN PLANUS [None]
  - ORAL MUCOSAL ERYTHEMA [None]
